FAERS Safety Report 8481728-3 (Version None)
Quarter: 2012Q3

REPORT INFORMATION
  Report Type: 
  Country: None (occurrence: None)
  Receive Date: 20120702
  Receipt Date: 20120619
  Transmission Date: 20120928
  Serious: Yes (Death, Hospitalization)
  Sender: FDA-Public Use
  Company Number: US-ROCHE-1007981

PATIENT
  Age: 71 Year

DRUGS (2)
  1. TEMOZOLOMIDE [Suspect]
     Indication: GLIOBLASTOMA
     Dosage: 75 MG/M2 PO QD
     Dates: start: 20101220
  2. AVASTIN [Suspect]
     Indication: GLIOBLASTOMA
     Dosage: 10 MG/KG IV OVER 30-90 MIN ON DAY 1 OF WKS 4 AND 6
     Dates: start: 20101220

REACTIONS (2)
  - ATAXIA [None]
  - DISEASE PROGRESSION [None]
